FAERS Safety Report 11628146 (Version 1)
Quarter: 2015Q4

REPORT INFORMATION
  Report Type: Spontaneous
  Country: DE (occurrence: DE)
  Receive Date: 20151014
  Receipt Date: 20151014
  Transmission Date: 20160304
  Serious: Yes (Other)
  Sender: FDA-Public Use
  Company Number: DE-WATSON-2015-21526

PATIENT
  Age: 1 Day
  Sex: Male
  Weight: 2.2 kg

DRUGS (2)
  1. BUDESONIDE. [Concomitant]
     Active Substance: BUDESONIDE
     Indication: AUTOIMMUNE HEPATITIS
     Dosage: 9 MG, DAILY
     Route: 064
  2. CITALOPRAM [Suspect]
     Active Substance: CITALOPRAM HYDROBROMIDE
     Indication: DEPRESSION
     Dosage: 20 MG, DAILY
     Route: 064

REACTIONS (5)
  - Exposure during pregnancy [Recovered/Resolved]
  - Small for dates baby [Recovered/Resolved]
  - Exposure during breast feeding [Recovered/Resolved]
  - Bradycardia neonatal [Recovered/Resolved]
  - Premature baby [Recovered/Resolved]

NARRATIVE: CASE EVENT DATE: 20150702
